FAERS Safety Report 7730234-X (Version None)
Quarter: 2011Q3

REPORT INFORMATION
  Report Type: 
  Country: None (occurrence: None)
  Receive Date: 20110901
  Receipt Date: 20110901
  Transmission Date: 20111222
  Serious: Yes (Death, Life-Threatening, Hospitalization)
  Sender: FDA-Public Use
  Company Number: None

PATIENT
  Sex: Female
  Weight: 56.8 kg

DRUGS (6)
  1. ARANESP [Suspect]
     Indication: HAEMOGLOBIN DECREASED
     Dosage: 40MCG+21DAYSLATER 60MCG 2 INJ 21 DAYS APART INJECTION  DOSE NOT AVAIL SINGLE INJ. INJECTION
     Route: 058
     Dates: start: 20091008
  2. ARANESP [Suspect]
     Indication: THROMBOCYTOSIS
     Dosage: 40MCG+21DAYSLATER 60MCG 2 INJ 21 DAYS APART INJECTION  DOSE NOT AVAIL SINGLE INJ. INJECTION
     Route: 058
     Dates: start: 20091008
  3. ARANESP [Suspect]
     Indication: HAEMOGLOBIN DECREASED
     Dosage: 40MCG+21DAYSLATER 60MCG 2 INJ 21 DAYS APART INJECTION  DOSE NOT AVAIL SINGLE INJ. INJECTION
     Route: 058
     Dates: start: 20110601
  4. ARANESP [Suspect]
     Indication: THROMBOCYTOSIS
     Dosage: 40MCG+21DAYSLATER 60MCG 2 INJ 21 DAYS APART INJECTION  DOSE NOT AVAIL SINGLE INJ. INJECTION
     Route: 058
     Dates: start: 20110601
  5. ARANESP [Suspect]
     Indication: HAEMOGLOBIN DECREASED
     Dosage: 40MCG+21DAYSLATER 60MCG 2 INJ 21 DAYS APART INJECTION  DOSE NOT AVAIL SINGLE INJ. INJECTION
     Route: 058
     Dates: start: 20090918
  6. ARANESP [Suspect]
     Indication: THROMBOCYTOSIS
     Dosage: 40MCG+21DAYSLATER 60MCG 2 INJ 21 DAYS APART INJECTION  DOSE NOT AVAIL SINGLE INJ. INJECTION
     Route: 058
     Dates: start: 20090918

REACTIONS (8)
  - ADVERSE DRUG REACTION [None]
  - DYSPNOEA [None]
  - TERMINAL STATE [None]
  - FLUID RETENTION [None]
  - HOSPICE CARE [None]
  - HYPERTENSION [None]
  - BRADYCARDIA [None]
  - BEDRIDDEN [None]
